FAERS Safety Report 6644022-9 (Version None)
Quarter: 2010Q1

REPORT INFORMATION
  Report Type: 
  Country: None (occurrence: None)
  Receive Date: 20100317
  Receipt Date: 20010301
  Transmission Date: 20100710
  Serious: Yes (Death, Hospitalization)
  Sender: FDA-Public Use
  Company Number: AUR-APU-2010-00598

PATIENT
  Sex: Female

DRUGS (2)
  1. AMOXICILLIN [Suspect]
  2. PROPRANOLOL [Suspect]
     Indication: LOWER RESPIRATORY TRACT INFECTION

REACTIONS (5)
  - DEHYDRATION [None]
  - DRUG DISPENSING ERROR [None]
  - FALL [None]
  - INFECTION [None]
  - WRONG DRUG ADMINISTERED [None]
